FAERS Safety Report 11455929 (Version 1)
Quarter: 2015Q3

REPORT INFORMATION
  Report Type: Spontaneous
  Country: US (occurrence: US)
  Receive Date: 20150903
  Receipt Date: 20150903
  Transmission Date: 20151125
  Serious: Yes (Other)
  Sender: FDA-Public Use
  Company Number: US-BANPHARM-20154185

PATIENT
  Age: 39 Year
  Sex: Female

DRUGS (5)
  1. ASTEPRO [Concomitant]
     Active Substance: AZELASTINE HYDROCHLORIDE
     Route: 045
  2. ZONISAMIDE UNKNOWN PRODUCT [Suspect]
     Active Substance: ZONISAMIDE
     Indication: MIGRAINE
     Dosage: DF 25MG, QD,
  3. BECLOMETHASONE INHALER [Concomitant]
  4. BOTULINUM INJECTIONS [Concomitant]
     Indication: MIGRAINE PROPHYLAXIS
     Dosage: QUARTERLY,
     Route: 030
  5. IMITREX [Concomitant]
     Active Substance: SUMATRIPTAN\SUMATRIPTAN SUCCINATE
     Indication: MIGRAINE PROPHYLAXIS

REACTIONS (3)
  - Choroidal effusion [Recovered/Resolved]
  - Angle closure glaucoma [Recovered/Resolved]
  - Myopia [Recovered/Resolved]
